FAERS Safety Report 12655063 (Version 1)
Quarter: 2016Q3

REPORT INFORMATION
  Report Type: Spontaneous
  Country: US (occurrence: None)
  Receive Date: 20160815
  Receipt Date: 20160815
  Transmission Date: 20161109
  Serious: Yes (Other)
  Sender: FDA-Public Use
  Company Number: None

PATIENT
  Age: 28 Year
  Sex: Female
  Weight: 88 kg

DRUGS (1)
  1. MISOPROSTOL. [Suspect]
     Active Substance: MISOPROSTOL
     Indication: INTRA-UTERINE CONTRACEPTIVE DEVICE INSERTION
     Route: 048

REACTIONS (3)
  - Urinary incontinence [None]
  - Loss of consciousness [None]
  - Dizziness [None]

NARRATIVE: CASE EVENT DATE: 20160812
